FAERS Safety Report 9113474 (Version 1)
Quarter: 2013Q1

REPORT INFORMATION
  Report Type: Spontaneous
  Country: US (occurrence: US)
  Receive Date: 20130129
  Receipt Date: 20130129
  Transmission Date: 20140127
  Serious: Yes (Hospitalization)
  Sender: FDA-Public Use
  Company Number: US-009507513-1301USA003659

PATIENT
  Sex: Male

DRUGS (7)
  1. SINGULAIR [Suspect]
     Indication: ASTHMA
     Dosage: 5 MG, QD
  2. PROVENTIL [Suspect]
  3. ALBUTEROL SULFATE [Suspect]
  4. VERAMYST [Suspect]
  5. QVAR [Suspect]
  6. CETIRIZINE HYDROCHLORIDE [Suspect]
  7. FOCALIN XR [Suspect]

REACTIONS (5)
  - Tremor [Unknown]
  - Muscle spasms [Unknown]
  - Malaise [Unknown]
  - Lung infection [Unknown]
  - Dyspnoea [Unknown]
